FAERS Safety Report 18110907 (Version 1)
Quarter: 2020Q3

REPORT INFORMATION
  Report Type: Spontaneous
  Country: US (occurrence: US)
  Receive Date: 20200804
  Receipt Date: 20200804
  Transmission Date: 20201103
  Serious: No
  Sender: FDA-Public Use
  Company Number: US-JNJFOC-20200743785

PATIENT
  Sex: Female
  Weight: 68.1 kg

DRUGS (3)
  1. INVEGA TRINZA [Suspect]
     Active Substance: PALIPERIDONE PALMITATE
     Indication: SCHIZOPHRENIA
     Route: 030
  2. INVEGA TRINZA [Suspect]
     Active Substance: PALIPERIDONE PALMITATE
     Route: 030
  3. INVEGA TRINZA [Suspect]
     Active Substance: PALIPERIDONE PALMITATE

REACTIONS (9)
  - Oropharyngeal pain [Unknown]
  - Stress [Unknown]
  - Restlessness [Unknown]
  - Sneezing [Unknown]
  - Thinking abnormal [Unknown]
  - Inappropriate schedule of product administration [Unknown]
  - Dizziness [Unknown]
  - Tremor [Unknown]
  - Off label use [Unknown]
